FAERS Safety Report 15110583 (Version 1)
Quarter: 2018Q3

REPORT INFORMATION
  Report Type: Spontaneous
  Country: CN (occurrence: CN)
  Receive Date: 20180705
  Receipt Date: 20180705
  Transmission Date: 20181010
  Serious: Yes (Other)
  Sender: FDA-Public Use
  Company Number: CN-PFIZER INC-2018266408

PATIENT
  Age: 75 Year
  Sex: Female
  Weight: 49 kg

DRUGS (2)
  1. TYGACIL [Suspect]
     Active Substance: TIGECYCLINE
     Indication: INFECTION
     Dosage: 50 MG, 2X/DAY
     Route: 041
     Dates: start: 20180426, end: 20180501
  2. VFEND [Suspect]
     Active Substance: VORICONAZOLE
     Indication: INFECTION
     Dosage: 0.2 G, 2X/DAY
     Route: 041
     Dates: start: 20180426, end: 20180501

REACTIONS (1)
  - Renal impairment [Unknown]

NARRATIVE: CASE EVENT DATE: 20180501
